FAERS Safety Report 10035896 (Version 3)
Quarter: 2014Q4

REPORT INFORMATION
  Report Type: Report from Study
  Country: PL (occurrence: PL)
  Receive Date: 20140325
  Receipt Date: 20141031
  Transmission Date: 20150528
  Serious: Yes (Other)
  Sender: FDA-Public Use
  Company Number: PL-VERTEX PHARMACEUTICALS INC-2014-001504

PATIENT
  Age: 64 Year
  Sex: Female

DRUGS (12)
  1. VX-950 (TELAPREVIR) [Suspect]
     Active Substance: TELAPREVIR
     Indication: HEPATITIS C
     Dosage: 2250 MG, UNK
     Route: 048
     Dates: start: 20130829, end: 20130912
  2. PEGINTERFERON ALFA-2A [Suspect]
     Active Substance: PEGINTERFERON ALFA-2A
     Indication: HEPATITIS C
     Dosage: DOSAGE FORM: SOLUTION
     Route: 058
     Dates: start: 20130829
  3. VALSARTAN. [Concomitant]
     Active Substance: VALSARTAN
     Dosage: DOSAGE FORM: UNKNOWN, 12 MONTH
  4. PEGINTERFERON LAMBDA-1A [Suspect]
     Active Substance: PEGINTERFERON LAMBDA-1A
     Indication: HEPATITIS C
     Dosage: DOSAGE FORM: SOLUTION
     Route: 058
     Dates: start: 20130829
  5. RIBAVIRIN. [Suspect]
     Active Substance: RIBAVIRIN
     Indication: HEPATITIS C
     Dosage: DOSAGE FORM: TABLET
     Route: 048
     Dates: start: 20130829
  6. RIBAVIRIN. [Suspect]
     Active Substance: RIBAVIRIN
     Dosage: 1200 MG, UNK
     Route: 048
     Dates: end: 20140731
  7. SALICYLIC ACID. [Concomitant]
     Active Substance: SALICYLIC ACID
  8. VALSARTAN. [Concomitant]
     Active Substance: VALSARTAN
     Dosage: DOSAGE FORM: UNKNOWN
  9. VALSARTAN. [Concomitant]
     Active Substance: VALSARTAN
     Indication: HYPERTENSION
     Dosage: UNK
  10. VALSARTAN. [Concomitant]
     Active Substance: VALSARTAN
     Dosage: DOSAGE FORM: UNKNOWN
  11. ACETYLSALICYLIC ACID [Concomitant]
     Active Substance: ASPIRIN
     Indication: HYPERTENSION
  12. NEBIVOLOL [Concomitant]
     Active Substance: NEBIVOLOL
     Indication: HYPERTENSION
     Dosage: 12 MONTH

REACTIONS (1)
  - Rash [Recovered/Resolved]

NARRATIVE: CASE EVENT DATE: 20130910
